FAERS Safety Report 13361371 (Version 1)
Quarter: 2017Q1

REPORT INFORMATION
  Report Type: Spontaneous
  Country: CA (occurrence: CA)
  Receive Date: 20170323
  Receipt Date: 20170323
  Transmission Date: 20170429
  Serious: Yes (Death)
  Sender: FDA-Public Use
  Company Number: CA-TEVA-750181ACC

PATIENT
  Age: 30 Year
  Sex: Male

DRUGS (1)
  1. FENTANYL. [Suspect]
     Active Substance: FENTANYL
     Indication: PRODUCT USED FOR UNKNOWN INDICATION
     Route: 062

REACTIONS (10)
  - Product use issue [Fatal]
  - Completed suicide [Fatal]
  - Incorrect drug administration duration [Fatal]
  - Resuscitation [Fatal]
  - Toxicity to various agents [Fatal]
  - Medication residue present [Fatal]
  - Drug monitoring procedure not performed [Fatal]
  - Product physical issue [Fatal]
  - Analgesic drug level above therapeutic [Fatal]
  - Circumstance or information capable of leading to medication error [Fatal]
